FAERS Safety Report 14311590 (Version 1)
Quarter: 2017Q4

REPORT INFORMATION
  Report Type: Spontaneous
  Country: US (occurrence: US)
  Receive Date: 20171221
  Receipt Date: 20171221
  Transmission Date: 20180321
  Serious: No
  Sender: FDA-Public Use
  Company Number: US-ELI_LILLY_AND_COMPANY-US201712008608

PATIENT
  Sex: Female

DRUGS (1)
  1. CYMBALTA [Suspect]
     Active Substance: DULOXETINE HYDROCHLORIDE
     Indication: PRODUCT USED FOR UNKNOWN INDICATION
     Dosage: 30 MG, UNKNOWN
     Route: 065

REACTIONS (13)
  - Feeling abnormal [Unknown]
  - Pain [Unknown]
  - Sleep apnoea syndrome [Unknown]
  - Hallucination [Unknown]
  - Insomnia [Unknown]
  - Dyspepsia [Unknown]
  - Hyperhidrosis [Unknown]
  - Mental impairment [Unknown]
  - Somnolence [Unknown]
  - Drug withdrawal syndrome [Unknown]
  - Head discomfort [Unknown]
  - Sleep paralysis [Unknown]
  - Wrong technique in product usage process [Unknown]
